FAERS Safety Report 7796678-5 (Version None)
Quarter: 2011Q3

REPORT INFORMATION
  Report Type: 
  Country: None (occurrence: None)
  Receive Date: 20110930
  Receipt Date: 20110916
  Transmission Date: 20111222
  Serious: Yes (Death)
  Sender: FDA-Public Use
  Company Number: 7084930

PATIENT
  Sex: Male

DRUGS (2)
  1. ASELLACRIN 10 [Suspect]
     Indication: PRODUCT USED FOR UNKNOWN INDICATION
     Dosage: 1.5 TO 2 U TID, IM
     Route: 030
     Dates: start: 19830515, end: 19850415
  2. CRESCORMON [Suspect]
     Indication: PRODUCT USED FOR UNKNOWN INDICATION

REACTIONS (1)
  - CREUTZFELDT-JAKOB DISEASE [None]
